FAERS Safety Report 25613673 (Version 1)
Quarter: 2025Q3

REPORT INFORMATION
  Report Type: Spontaneous
  Country: EU (occurrence: EU)
  Receive Date: 20250728
  Receipt Date: 20250728
  Transmission Date: 20251021
  Serious: Yes (Hospitalization)
  Sender: MYLAN
  Company Number: None

PATIENT
  Age: 14 Year
  Sex: Female

DRUGS (8)
  1. TRAMADOL [Suspect]
     Active Substance: TRAMADOL
     Indication: Product used for unknown indication
     Dates: start: 20250610, end: 20250610
  2. TRAMADOL [Suspect]
     Active Substance: TRAMADOL
     Dates: start: 20250610, end: 20250610
  3. TRAMADOL [Suspect]
     Active Substance: TRAMADOL
     Route: 048
     Dates: start: 20250610, end: 20250610
  4. TRAMADOL [Suspect]
     Active Substance: TRAMADOL
     Route: 048
     Dates: start: 20250610, end: 20250610
  5. TRAMADOL [Suspect]
     Active Substance: TRAMADOL
  6. TRAMADOL [Suspect]
     Active Substance: TRAMADOL
  7. TRAMADOL [Suspect]
     Active Substance: TRAMADOL
     Route: 048
  8. TRAMADOL [Suspect]
     Active Substance: TRAMADOL
     Route: 048

REACTIONS (3)
  - Depressed level of consciousness [Recovered/Resolved]
  - Abdominal pain [Recovered/Resolved]
  - Drug abuse [Not Recovered/Not Resolved]

NARRATIVE: CASE EVENT DATE: 20250601
